FAERS Safety Report 7635599-5 (Version None)
Quarter: 2011Q3

REPORT INFORMATION
  Report Type: 
  Country: None (occurrence: None)
  Receive Date: 20110726
  Receipt Date: 20110713
  Transmission Date: 20111222
  Serious: Yes (Hospitalization)
  Sender: FDA-Public Use
  Company Number: PHHY2011JP63873

PATIENT
  Sex: Female

DRUGS (3)
  1. VALPROATE SODIUM [Suspect]
     Indication: INFANTILE SPASMS
     Dosage: 1400 MG, DAILY
     Route: 064
  2. PHENOBARBITAL TAB [Concomitant]
     Indication: INFANTILE SPASMS
     Dosage: 140 MG, DAILY
     Route: 064
  3. CARBAMAZEPINE [Suspect]
     Indication: INFANTILE SPASMS
     Dosage: 1200 MG, DAILY
     Route: 064

REACTIONS (12)
  - SMALL FOR DATES BABY [None]
  - LIMB REDUCTION DEFECT [None]
  - RESPIRATORY DISORDER [None]
  - FOETAL ANTICONVULSANT SYNDROME [None]
  - HYPOTONIA [None]
  - FAILURE TO THRIVE [None]
  - VENTRICULAR SEPTAL DEFECT [None]
  - ATRIAL SEPTAL DEFECT [None]
  - FOETAL GROWTH RESTRICTION [None]
  - PATENT DUCTUS ARTERIOSUS [None]
  - JOINT CONTRACTURE [None]
  - WRIST DEFORMITY [None]
